FAERS Safety Report 24957792 (Version 1)
Quarter: 2025Q1

REPORT INFORMATION
  Report Type: Report from Study
  Country: CH (occurrence: CH)
  Receive Date: 20250212
  Receipt Date: 20250212
  Transmission Date: 20250409
  Serious: Yes (Other)
  Sender: AUROBINDO
  Company Number: CH-AUROBINDO-AUR-APL-2025-006628

PATIENT
  Age: 132 Month
  Sex: Female

DRUGS (2)
  1. MELPHALAN [Suspect]
     Active Substance: MELPHALAN
     Indication: Retinoblastoma
  2. MELPHALAN [Suspect]
     Active Substance: MELPHALAN
     Route: 013

REACTIONS (1)
  - Cataract [Unknown]
